FAERS Safety Report 4574068-6 (Version None)
Quarter: 2005Q1

REPORT INFORMATION
  Report Type: 
  Country: None (occurrence: None)
  Receive Date: 20050204
  Receipt Date: 20050126
  Transmission Date: 20050727
  Serious: Yes (Hospitalization)
  Sender: FDA-Public Use
  Company Number: 2004UW25045

PATIENT
  Age: 44 Year
  Sex: Male
  Weight: 82.1011 kg

DRUGS (10)
  1. CRESTOR [Suspect]
     Indication: HYPERLIPIDAEMIA
     Dosage: 10 MG QD PO
     Route: 048
     Dates: start: 20040325, end: 20041123
  2. FLAGYL [Concomitant]
  3. AMOXICILLIN [Concomitant]
  4. PANTOPRAZOLE [Concomitant]
  5. INSULIN [Concomitant]
  6. WARFARIN SODIUM [Concomitant]
  7. CLOPIDOGREL [Concomitant]
  8. ALPRAZOLAM [Concomitant]
  9. TOPROL-XL [Concomitant]
  10. NEURONTIN [Concomitant]

REACTIONS (13)
  - ALANINE AMINOTRANSFERASE INCREASED [None]
  - ASPARTATE AMINOTRANSFERASE INCREASED [None]
  - BLOOD ALKALINE PHOSPHATASE INCREASED [None]
  - BLOOD CREATINE PHOSPHOKINASE INCREASED [None]
  - DEHYDRATION [None]
  - HELICOBACTER INFECTION [None]
  - HYPOTENSION [None]
  - HYPOVOLAEMIA [None]
  - MYALGIA [None]
  - MYOPATHY [None]
  - PEPTIC ULCER [None]
  - PROTHROMBIN TIME PROLONGED [None]
  - RENAL FAILURE ACUTE [None]
